FAERS Safety Report 17233802 (Version 4)
Quarter: 2021Q1

REPORT INFORMATION
  Report Type: Report from Study
  Country: None (occurrence: US)
  Receive Date: 20200106
  Receipt Date: 20210122
  Transmission Date: 20210419
  Serious: Yes (Other)
  Sender: FDA-Public Use
  Company Number: US-ABBVIE-20P-163-3216933-00

PATIENT
  Age: 79 Year
  Sex: Female
  Weight: 62 kg

DRUGS (4)
  1. IMBRUVICA [Suspect]
     Active Substance: IBRUTINIB
     Route: 048
     Dates: start: 20180511
  2. IMBRUVICA [Suspect]
     Active Substance: IBRUTINIB
     Route: 048
     Dates: start: 20190405
  3. IMBRUVICA [Suspect]
     Active Substance: IBRUTINIB
     Route: 048
  4. IMBRUVICA [Suspect]
     Active Substance: IBRUTINIB
     Indication: NON-HODGKIN^S LYMPHOMA
     Route: 048
     Dates: start: 20180510

REACTIONS (10)
  - Arthroscopic surgery [Not Recovered/Not Resolved]
  - Depression [Unknown]
  - Nail disorder [Unknown]
  - Pain in extremity [Unknown]
  - Synovial cyst [Unknown]
  - Contusion [Unknown]
  - Joint effusion [Unknown]
  - Nail growth abnormal [Unknown]
  - Malignant neoplasm progression [Unknown]
  - Hair disorder [Unknown]

NARRATIVE: CASE EVENT DATE: 20191218
